FAERS Safety Report 6463922-6 (Version None)
Quarter: 2009Q4

REPORT INFORMATION
  Report Type: 
  Country: None (occurrence: None)
  Receive Date: 20091201
  Receipt Date: 20091119
  Transmission Date: 20100525
  Serious: Yes (Other)
  Sender: FDA-Public Use
  Company Number: US-JNJFOC-20091101655

PATIENT
  Sex: Female
  Weight: 53.07 kg

DRUGS (24)
  1. FENTANYL CITRATE [Suspect]
     Indication: PAIN
     Route: 062
  2. DURAGESIC-100 [Suspect]
  3. DURAGESIC-100 [Suspect]
  4. DURAGESIC-100 [Suspect]
     Indication: PAIN
  5. DURAGESIC-100 [Suspect]
     Route: 062
  6. PROCARDIA [Concomitant]
     Indication: ANTICOAGULANT THERAPY
  7. PROTONIX [Concomitant]
     Indication: GASTROINTESTINAL DISORDER THERAPY
     Route: 048
  8. VASOTEC [Concomitant]
     Indication: BLOOD PRESSURE
     Route: 048
  9. ZONEGRAN [Concomitant]
     Indication: CONVULSION
     Route: 048
  10. ZETIA [Concomitant]
     Indication: BLOOD CHOLESTEROL
     Route: 048
  11. AMBIEN CR [Concomitant]
     Indication: SLEEP DISORDER
     Route: 048
  12. ELAVIL [Concomitant]
     Indication: PAIN
     Route: 048
  13. FIORICET [Concomitant]
     Indication: MIGRAINE
  14. AMRIX [Concomitant]
     Indication: FIBROMYALGIA
     Route: 048
  15. MOBIC [Concomitant]
     Indication: FIBROMYALGIA
     Route: 048
  16. NUCYNTA [Concomitant]
     Indication: BREAKTHROUGH PAIN
     Route: 048
  17. LUNESTA [Concomitant]
     Indication: SLEEP DISORDER
     Route: 065
  18. ASPIRIN [Concomitant]
     Route: 065
  19. ACTONEL [Concomitant]
     Indication: OSTEOPOROSIS
     Dosage: ONE PER WEEK
     Route: 065
  20. CALCIUM [Concomitant]
     Route: 065
  21. FISH OIL [Concomitant]
     Route: 065
  22. MULTIVITAMINES [Concomitant]
     Route: 065
  23. ASCORBIC ACID [Concomitant]
     Route: 065
  24. SAVELLA [Concomitant]
     Indication: FIBROMYALGIA
     Route: 065

REACTIONS (8)
  - APPLICATION SITE ERYTHEMA [None]
  - APPLICATION SITE RASH [None]
  - APPLICATION SITE SCAR [None]
  - FUNGAL INFECTION [None]
  - INAPPROPRIATE SCHEDULE OF DRUG ADMINISTRATION [None]
  - PRODUCT ADHESION ISSUE [None]
  - RAYNAUD'S PHENOMENON [None]
  - WRONG TECHNIQUE IN DRUG USAGE PROCESS [None]
